FAERS Safety Report 12938064 (Version 2)
Quarter: 2016Q4

REPORT INFORMATION
  Report Type: Spontaneous
  Country: JP (occurrence: JP)
  Receive Date: 20161114
  Receipt Date: 20161121
  Transmission Date: 20170207
  Serious: Yes (Other)
  Sender: FDA-Public Use
  Company Number: PHJP2016JP032446

PATIENT
  Age: 67 Year
  Sex: Male

DRUGS (2)
  1. TEGRETOL [Suspect]
     Active Substance: CARBAMAZEPINE
     Indication: POST HERPETIC NEURALGIA
     Dosage: UNK
     Route: 048
     Dates: start: 20150721, end: 20150901
  2. TRYPTANOL [Concomitant]
     Active Substance: AMITRIPTYLINE
     Indication: POST HERPETIC NEURALGIA
     Dosage: UNK
     Route: 065

REACTIONS (20)
  - Diarrhoea [Recovering/Resolving]
  - Lymphadenopathy [Unknown]
  - Blood creatinine increased [Recovering/Resolving]
  - Generalised erythema [Unknown]
  - Lymph node pain [Unknown]
  - Acute kidney injury [Recovering/Resolving]
  - Thrombophlebitis [Recovering/Resolving]
  - Dyspnoea [Unknown]
  - Swelling face [Unknown]
  - Sepsis [Recovering/Resolving]
  - Oxygen saturation decreased [Unknown]
  - Drug reaction with eosinophilia and systemic symptoms [Recovering/Resolving]
  - Agranulocytosis [Recovering/Resolving]
  - Staphylococcus test positive [Unknown]
  - Clostridium difficile colitis [Recovering/Resolving]
  - Cytomegalovirus test positive [Recovering/Resolving]
  - Pyrexia [Recovering/Resolving]
  - Pneumonia [Recovering/Resolving]
  - Clostridium test positive [Unknown]
  - Skin exfoliation [Unknown]

NARRATIVE: CASE EVENT DATE: 20150824
